FAERS Safety Report 9682177 (Version 1)
Quarter: 2013Q4

REPORT INFORMATION
  Report Type: Spontaneous
  Country: JP (occurrence: JP)
  Receive Date: 20131111
  Receipt Date: 20131111
  Transmission Date: 20140711
  Serious: Yes (Hospitalization, Other)
  Sender: FDA-Public Use
  Company Number: JP-GILEAD-2013-0087050

PATIENT
  Age: 42 Year
  Sex: Male

DRUGS (6)
  1. TRUVADA [Suspect]
     Indication: HIV INFECTION
     Dosage: UNK
     Route: 048
  2. STOCRIN [Suspect]
     Indication: HIV INFECTION
     Route: 048
  3. PIRARUBICIN HYDROCHLORIDE [Suspect]
     Indication: LYMPHOMA
     Route: 041
  4. CYCLOPHOSPHAMIDE MONOHYDRATE [Suspect]
     Indication: LYMPHOMA
     Route: 041
  5. VINCRISTINE SULFATE [Suspect]
     Indication: LYMPHOMA
     Route: 041
  6. PREDNISOLONE [Suspect]
     Indication: LYMPHOMA
     Route: 048

REACTIONS (2)
  - Cytomegalovirus chorioretinitis [Recovered/Resolved]
  - Immune reconstitution inflammatory syndrome [Recovered/Resolved]
